FAERS Safety Report 6613143-9 (Version None)
Quarter: 2010Q1

REPORT INFORMATION
  Report Type: 
  Country: None (occurrence: None)
  Receive Date: 20100225
  Receipt Date: 20100210
  Transmission Date: 20100710
  Serious: Yes (Other)
  Sender: FDA-Public Use
  Company Number: 2009SP039423

PATIENT
  Age: 57 Year
  Sex: Female
  Weight: 88.4514 kg

DRUGS (7)
  1. MIRALAX [Suspect]
     Indication: CONSTIPATION
     Dosage: 17 GM; QD; PO
     Route: 048
     Dates: start: 20090701, end: 20091110
  2. MIRALAX [Suspect]
     Indication: CONSTIPATION
     Dosage: 17 GM; QD; PO
     Route: 048
     Dates: start: 20091201
  3. ASPIRIN /00002703/ [Concomitant]
  4. CALCIUM MAGNESIUM /01320801/ [Concomitant]
  5. POTASSIUM [Concomitant]
  6. LEVOTHYROXINE SODIUM [Concomitant]
  7. MULTI-VITAMINS [Concomitant]

REACTIONS (17)
  - ABNORMAL DREAMS [None]
  - ASTHENIA [None]
  - AUTOIMMUNE THYROIDITIS [None]
  - DREAMY STATE [None]
  - EMOTIONAL DISORDER [None]
  - FEELING ABNORMAL [None]
  - HASHIMOTO'S ENCEPHALOPATHY [None]
  - HEART RATE DECREASED [None]
  - HEMIPARESIS [None]
  - HEPATIC ENZYME INCREASED [None]
  - HYPOAESTHESIA [None]
  - MEMORY IMPAIRMENT [None]
  - MIGRAINE [None]
  - OXYGEN SATURATION DECREASED [None]
  - SPEECH DISORDER [None]
  - SYNCOPE [None]
  - VISUAL IMPAIRMENT [None]
